FAERS Safety Report 26061547 (Version 2)
Quarter: 2025Q4

REPORT INFORMATION
  Report Type: Spontaneous
  Country: EU (occurrence: EU)
  Receive Date: 20251118
  Receipt Date: 20251231
  Transmission Date: 20260117
  Serious: Yes (Other)
  Sender: AMGEN
  Company Number: EU-AMGEN-SWESP2025193271

PATIENT
  Sex: Male
  Weight: 0.96 kg

DRUGS (2)
  1. PROCYSBI [Suspect]
     Active Substance: CYSTEAMINE BITARTRATE
     Indication: Cystinosis
     Dosage: UNK
     Route: 063
     Dates: start: 202506, end: 20250923
  2. OXYGEN [Concomitant]
     Active Substance: OXYGEN
     Dosage: UNK
     Route: 065
     Dates: end: 20250927

REACTIONS (6)
  - Bronchopulmonary dysplasia [Not Recovered/Not Resolved]
  - Neonatal respiratory distress syndrome [Recovered/Resolved]
  - Weight decrease neonatal [Recovered/Resolved]
  - Jaundice neonatal [Recovered/Resolved]
  - Anaemia neonatal [Recovered/Resolved]
  - Exposure via breast milk [Recovered/Resolved]

NARRATIVE: CASE EVENT DATE: 20250101
